FAERS Safety Report 7128635-6 (Version None)
Quarter: 2010Q4

REPORT INFORMATION
  Report Type: 
  Country: None (occurrence: None)
  Receive Date: 20101130
  Receipt Date: 20101122
  Transmission Date: 20110411
  Serious: Yes (Other)
  Sender: FDA-Public Use
  Company Number: PHHY2010CA51589

PATIENT
  Sex: Male

DRUGS (3)
  1. SANDOSTATIN [Suspect]
     Indication: CARCINOID TUMOUR OF THE SMALL BOWEL
     Dosage: 5 UG, TID
     Route: 058
     Dates: start: 20100422
  2. SANDOSTATIN [Suspect]
     Dosage: 30 MG EVERY 4 WEEKS
     Route: 030
     Dates: start: 20100822
  3. SANDOSTATIN LAR [Suspect]
     Indication: SMALL INTESTINE CARCINOMA
     Dosage: 30 MG EVERY 4 WEEKS
     Route: 030
     Dates: start: 20100822

REACTIONS (7)
  - ABDOMINAL PAIN UPPER [None]
  - CARDIAC MURMUR [None]
  - CHEST PAIN [None]
  - DIARRHOEA [None]
  - HYPOAESTHESIA [None]
  - LUNG NEOPLASM [None]
  - NAUSEA [None]
